FAERS Safety Report 7375396-1 (Version None)
Quarter: 2011Q1

REPORT INFORMATION
  Report Type: 
  Country: None (occurrence: None)
  Receive Date: 20110325
  Receipt Date: 20110316
  Transmission Date: 20110831
  Serious: Yes (Other)
  Sender: FDA-Public Use
  Company Number: US-CEPHALON-2011000058

PATIENT
  Sex: Female
  Weight: 59 kg

DRUGS (6)
  1. MICROGESTIN 1.5/30 [Concomitant]
     Dates: start: 20100822
  2. NUVIGIL [Suspect]
     Indication: DEPRESSION
     Route: 048
     Dates: start: 20101104, end: 20110101
  3. VALPROIC ACID [Concomitant]
     Dates: start: 20091201
  4. ARIPIPRAZOLE [Concomitant]
     Dates: start: 20100201
  5. MULTIVITAMIN/DHA [Concomitant]
     Dates: start: 20000101
  6. NUVIGIL [Suspect]
     Route: 048
     Dates: start: 20110104, end: 20110104

REACTIONS (2)
  - ABORTION SPONTANEOUS [None]
  - DRUG EXPOSURE DURING PREGNANCY [None]
